FAERS Safety Report 17101609 (Version 1)
Quarter: 2019Q4

REPORT INFORMATION
  Report Type: Spontaneous
  Country: ES (occurrence: ES)
  Receive Date: 20191202
  Receipt Date: 20191202
  Transmission Date: 20200122
  Serious: Yes (Hospitalization)
  Sender: FDA-Public Use
  Company Number: ES-NAPPMUNDI-GBR-2019-0073267

PATIENT
  Age: 87 Year
  Sex: Male

DRUGS (2)
  1. BUPRENORPHINE. [Suspect]
     Active Substance: BUPRENORPHINE
     Indication: OSTEOARTHRITIS
     Dosage: 1 DF EVERY 96 HOUR (70MCG/H PATCH)
     Route: 062
     Dates: start: 20150918, end: 20190130
  2. LORAZEPAM. [Interacting]
     Active Substance: LORAZEPAM
     Indication: ANXIETY
     Dosage: 1 MG, DAILY
     Route: 048
     Dates: start: 20150519

REACTIONS (3)
  - Aggression [Recovered/Resolved]
  - Drug interaction [Unknown]
  - Behaviour disorder [Recovered/Resolved]

NARRATIVE: CASE EVENT DATE: 20190130
